FAERS Safety Report 16590834 (Version 1)
Quarter: 2019Q3

REPORT INFORMATION
  Report Type: Spontaneous
  Country: US (occurrence: US)
  Receive Date: 20190717
  Receipt Date: 20190717
  Transmission Date: 20191004
  Serious: Yes (Hospitalization)
  Sender: FDA-Public Use
  Company Number: None

PATIENT
  Age: 72 Year
  Sex: Female
  Weight: 79.65 kg

DRUGS (1)
  1. ZOLPIDEM TARTRATE 10 MG TABLET [Suspect]
     Active Substance: ZOLPIDEM TARTRATE
     Indication: INSOMNIA
     Dosage: ?          QUANTITY:30 TABLET(S);?
     Route: 048
     Dates: start: 20190627, end: 20190713

REACTIONS (12)
  - Neck pain [None]
  - Hallucination [None]
  - Constipation [None]
  - Decreased appetite [None]
  - Tongue discomfort [None]
  - Dizziness [None]
  - Abdominal pain [None]
  - Migraine [None]
  - Back pain [None]
  - Nausea [None]
  - Muscle spasms [None]
  - Abdominal pain upper [None]

NARRATIVE: CASE EVENT DATE: 20190714
